FAERS Safety Report 8510906-X (Version None)
Quarter: 2012Q3

REPORT INFORMATION
  Report Type: 
  Country: None (occurrence: None)
  Receive Date: 20120710
  Receipt Date: 20120710
  Transmission Date: 20120928
  Serious: No
  Sender: FDA-Public Use
  Company Number: None

PATIENT
  Sex: Female
  Weight: 36.2878 kg

DRUGS (5)
  1. QUETIAPINE FUMARATE [Suspect]
     Indication: ANXIETY DISORDER
     Dosage: 50MG 1/2 TAB TID ORAL
     Route: 048
     Dates: start: 20120411
  2. QUETIAPINE FUMARATE [Suspect]
     Indication: ABNORMAL BEHAVIOUR
     Dosage: 50MG 1/2 TAB TID ORAL
     Route: 048
     Dates: start: 20120411
  3. FLUORETINE 15MG EVERY AM [Concomitant]
  4. MIRTAZAPINE 7.5MG EVERY BED TIME [Concomitant]
  5. FOCALIN XR 20MG EVERY AM [Concomitant]

REACTIONS (3)
  - AFFECTIVE DISORDER [None]
  - ABNORMAL BEHAVIOUR [None]
  - PRODUCT SUBSTITUTION ISSUE [None]
